FAERS Safety Report 19933527 (Version 2)
Quarter: 2021Q4

REPORT INFORMATION
  Report Type: Spontaneous
  Country: JP (occurrence: JP)
  Receive Date: 20211008
  Receipt Date: 20211026
  Transmission Date: 20220303
  Serious: Yes (Other)
  Sender: FDA-Public Use
  Company Number: JP-ELI_LILLY_AND_COMPANY-JP202110000624

PATIENT
  Age: 42 Year
  Sex: Female

DRUGS (2)
  1. INSULIN GLARGINE [Suspect]
     Active Substance: INSULIN GLARGINE
     Indication: Type 1 diabetes mellitus
     Dosage: 12 INTERNATIONAL UNIT, DAILY
     Route: 058
  2. INSULIN ASPART [Suspect]
     Active Substance: INSULIN ASPART
     Indication: Type 1 diabetes mellitus
     Dosage: 18 INTERNATIONAL UNIT
     Route: 065

REACTIONS (5)
  - Cardiac failure congestive [Recovered/Resolved]
  - Pyrexia [Unknown]
  - Blood pressure decreased [Unknown]
  - Anaemia [Unknown]
  - Hypoglycaemia [Recovered/Resolved]
